FAERS Safety Report 25733334 (Version 1)
Quarter: 2025Q3

REPORT INFORMATION
  Report Type: Spontaneous
  Country: CN (occurrence: CN)
  Receive Date: 20250828
  Receipt Date: 20250828
  Transmission Date: 20251020
  Serious: Yes (Other)
  Sender: GALDERMA
  Company Number: CN-GALDERMA-CN2025015941

PATIENT

DRUGS (2)
  1. BENZOYL PEROXIDE [Suspect]
     Active Substance: BENZOYL PEROXIDE
     Indication: Acne
     Route: 061
     Dates: start: 20250805, end: 20250810
  2. DIFFERIN GEL [Suspect]
     Active Substance: ADAPALENE
     Indication: Acne
     Route: 061
     Dates: start: 20250805, end: 20250810

REACTIONS (5)
  - Dermatitis [Recovering/Resolving]
  - Erythema [Unknown]
  - Rash [Recovering/Resolving]
  - Acne [Unknown]
  - Papule [Unknown]

NARRATIVE: CASE EVENT DATE: 20250801
